FAERS Safety Report 15682538 (Version 1)
Quarter: 2018Q4

REPORT INFORMATION
  Report Type: Spontaneous
  Country: AT (occurrence: AT)
  Receive Date: 20181203
  Receipt Date: 20181203
  Transmission Date: 20190205
  Serious: Yes (Other)
  Sender: FDA-Public Use
  Company Number: PHHY2018AT061735

PATIENT
  Age: 45 Year
  Sex: Female

DRUGS (4)
  1. IBRANCE [Suspect]
     Active Substance: PALBOCICLIB
     Indication: BREAST CANCER METASTATIC
     Dosage: 125 MG, QMO (CYCLIC DAILY ON DL-21, Q28 D)
     Route: 065
     Dates: start: 201704
  2. DENOSUMAB [Suspect]
     Active Substance: DENOSUMAB
     Indication: BREAST CANCER METASTATIC
     Dosage: 120 MG D1, QMO
     Route: 058
     Dates: start: 201704
  3. LETROZOLE. [Suspect]
     Active Substance: LETROZOLE
     Indication: BREAST CANCER METASTATIC
     Dosage: 2.5 MG/D, QD
     Route: 065
     Dates: start: 201704
  4. GOSERELIN [Suspect]
     Active Substance: GOSERELIN
     Indication: BREAST CANCER METASTATIC
     Dosage: 3.6 MG D1, QMO
     Route: 058
     Dates: start: 201704

REACTIONS (7)
  - Alanine aminotransferase increased [Recovering/Resolving]
  - Neutropenia [Unknown]
  - Alopecia [Unknown]
  - Fatigue [Unknown]
  - Gamma-glutamyltransferase increased [Recovering/Resolving]
  - Product use in unapproved indication [Unknown]
  - Blood alkaline phosphatase increased [Recovering/Resolving]

NARRATIVE: CASE EVENT DATE: 201704
